FAERS Safety Report 22539878 (Version 2)
Quarter: 2024Q2

REPORT INFORMATION
  Report Type: Other
  Country: US (occurrence: None)
  Receive Date: 20230609
  Receipt Date: 20240606
  Transmission Date: 20240716
  Serious: Yes (Other)
  Sender: FDA-Public Use
  Company Number: US-ROCHE-3361374

PATIENT
  Age: 42 Year
  Sex: Female

DRUGS (3)
  1. OCREVUS [Suspect]
     Active Substance: OCRELIZUMAB
     Indication: Relapsing-remitting multiple sclerosis
     Route: 065
  2. TYSABRI [Concomitant]
     Active Substance: NATALIZUMAB
  3. MAVENCLAD [Concomitant]
     Active Substance: CLADRIBINE

REACTIONS (2)
  - Disease progression [Unknown]
  - Drug ineffective [Unknown]
